FAERS Safety Report 23748643 (Version 1)
Quarter: 2024Q2

REPORT INFORMATION
  Report Type: Report from Study
  Country: DE (occurrence: DE)
  Receive Date: 20240416
  Receipt Date: 20240416
  Transmission Date: 20240715
  Serious: Yes (Other)
  Sender: FDA-Public Use
  Company Number: DE-002147023-NVSC2023DE098118

PATIENT
  Sex: Male

DRUGS (2)
  1. ETANERCEPT [Suspect]
     Active Substance: ETANERCEPT
     Indication: Product used for unknown indication
     Dosage: UNK
     Route: 065
  2. METHOTREXATE [Suspect]
     Active Substance: METHOTREXATE
     Indication: Product used for unknown indication
     Dosage: UNK
     Route: 065

REACTIONS (14)
  - Osteochondrosis [Unknown]
  - Radiculopathy [Unknown]
  - Frenulum breve [Unknown]
  - Chondromalacia [Unknown]
  - Foot deformity [Unknown]
  - Pain in extremity [Unknown]
  - Sciatica [Unknown]
  - Osteoarthritis [Unknown]
  - Transaminases increased [Recovered/Resolved]
  - Urinary tract infection [Not Recovered/Not Resolved]
  - Chondropathy [Unknown]
  - Chondropathy [Unknown]
  - Intervertebral disc protrusion [Unknown]
  - Osteoarthritis [Unknown]

NARRATIVE: CASE EVENT DATE: 20211229
